FAERS Safety Report 8362525-6 (Version None)
Quarter: 2012Q2

REPORT INFORMATION
  Report Type: 
  Country: None (occurrence: None)
  Receive Date: 20120516
  Receipt Date: 20120509
  Transmission Date: 20120825
  Serious: Yes (Hospitalization)
  Sender: FDA-Public Use
  Company Number: JP-BRISTOL-MYERS SQUIBB COMPANY-16541666

PATIENT
  Age: 47 Year
  Sex: Male

DRUGS (7)
  1. SITAGLIPTIN PHOSPHATE [Concomitant]
     Dosage: GLACTIV
  2. DIOVAN HCT [Concomitant]
     Dosage: CO-DIO
  3. ANTIHYPERTENSIVE [Concomitant]
  4. KINEDAK [Concomitant]
  5. METFORMIN HCL [Suspect]
     Indication: TYPE 2 DIABETES MELLITUS
     Dosage: 11AUG11-30MAR12,02APR12-10APR10;8D
     Route: 048
     Dates: start: 20110811, end: 20120410
  6. AMARYL [Concomitant]
  7. ADALAT CC [Concomitant]

REACTIONS (2)
  - SHOCK [None]
  - GASTROENTERITIS [None]
